FAERS Safety Report 22919444 (Version 2)
Quarter: 2023Q4

REPORT INFORMATION
  Report Type: Spontaneous
  Country: US (occurrence: US)
  Receive Date: 20230908
  Receipt Date: 20231114
  Transmission Date: 20240110
  Serious: Yes (Other)
  Sender: FDA-Public Use
  Company Number: US-ABBVIE-5396783

PATIENT
  Sex: Female
  Weight: 88.904 kg

DRUGS (1)
  1. HUMIRA [Suspect]
     Active Substance: ADALIMUMAB
     Indication: Psoriatic arthropathy
     Dosage: FORM STRENGTH: 40 MG
     Route: 058
     Dates: start: 2018

REACTIONS (12)
  - Blindness [Unknown]
  - Illness [Unknown]
  - Cerebral haemorrhage [Unknown]
  - Arthropathy [Unknown]
  - Musculoskeletal stiffness [Unknown]
  - Periarthritis [Unknown]
  - Pain [Unknown]
  - Memory impairment [Unknown]
  - Mobility decreased [Unknown]
  - Wrong product administered [Not Recovered/Not Resolved]
  - Fall [Unknown]
  - Injury [Unknown]

NARRATIVE: CASE EVENT DATE: 20190101
